FAERS Safety Report 14819053 (Version 1)
Quarter: 2018Q2

REPORT INFORMATION
  Report Type: Spontaneous
  Country: CA (occurrence: CA)
  Receive Date: 20180427
  Receipt Date: 20180427
  Transmission Date: 20180711
  Serious: Yes (Other)
  Sender: FDA-Public Use
  Company Number: CA-TEVA-2018-CA-884431

PATIENT
  Age: 59 Year
  Sex: Female
  Weight: 59.93 kg

DRUGS (1)
  1. PANTOPRAZOLE MAGNESIUMS [Suspect]
     Active Substance: PANTOPRAZOLE MAGNESIUM
     Indication: GASTROOESOPHAGEAL REFLUX DISEASE
     Route: 048

REACTIONS (1)
  - Drug ineffective [Recovered/Resolved]
